FAERS Safety Report 15396408 (Version 1)
Quarter: 2018Q3

REPORT INFORMATION
  Report Type: Spontaneous
  Country: US (occurrence: US)
  Receive Date: 20180911
  Receipt Date: 20180911
  Transmission Date: 20181010
  Serious: Yes (Hospitalization)
  Sender: FDA-Public Use
  Company Number: None

PATIENT
  Age: 68 Year
  Sex: Female
  Weight: 97.52 kg

DRUGS (1)
  1. ACTHAR [Suspect]
     Active Substance: CORTICOTROPIN
     Indication: NEPHROTIC SYNDROME
     Dosage: ?          OTHER DOSE:80 UNITS;OTHER FREQUENCY:OTHER;?
     Route: 058
     Dates: start: 20180727

REACTIONS (2)
  - Pneumonia [None]
  - Swelling [None]

NARRATIVE: CASE EVENT DATE: 20180903
